FAERS Safety Report 16782463 (Version 1)
Quarter: 2019Q3

REPORT INFORMATION
  Report Type: Spontaneous
  Country: IT (occurrence: IT)
  Receive Date: 20190906
  Receipt Date: 20190906
  Transmission Date: 20191005
  Serious: Yes (Other)
  Sender: FDA-Public Use
  Company Number: IT-ELI_LILLY_AND_COMPANY-IT201908013186

PATIENT
  Age: 50 Year
  Sex: Male

DRUGS (1)
  1. GEMCITABINE HYDROCHLORIDE. [Suspect]
     Active Substance: GEMCITABINE HYDROCHLORIDE
     Indication: UNDIFFERENTIATED NASOPHARYNGEAL CARCINOMA
     Dosage: 2 MG, CYCLICAL
     Route: 065
     Dates: start: 20190729, end: 20190805

REACTIONS (3)
  - Urticaria [Recovering/Resolving]
  - Off label use [Unknown]
  - Pruritus [Recovering/Resolving]

NARRATIVE: CASE EVENT DATE: 20190805
